FAERS Safety Report 25093946 (Version 1)
Quarter: 2025Q1

REPORT INFORMATION
  Report Type: Spontaneous
  Country: US (occurrence: None)
  Receive Date: 20250318
  Receipt Date: 20250318
  Transmission Date: 20250408
  Serious: Yes (unspecified)
  Sender: FDA-CTU
  Company Number: None

PATIENT
  Age: 67 Year
  Sex: Female

DRUGS (2)
  1. DASATINIB [Suspect]
     Active Substance: DASATINIB
     Indication: Chronic myelomonocytic leukaemia
     Dosage: FREQUENCY : DAILY;?
  2. TASIGNA [Concomitant]
     Active Substance: NILOTINIB

REACTIONS (2)
  - Ulcer [None]
  - Pancreatitis [None]
